FAERS Safety Report 15136501 (Version 2)
Quarter: 2018Q3

REPORT INFORMATION
  Report Type: Spontaneous
  Country: IT (occurrence: IT)
  Receive Date: 20180712
  Receipt Date: 20180905
  Transmission Date: 20181010
  Serious: Yes (Hospitalization)
  Sender: FDA-Public Use
  Company Number: IT-ELI_LILLY_AND_COMPANY-IT201807002234

PATIENT
  Age: 77 Year
  Sex: Male

DRUGS (3)
  1. ALIMTA [Suspect]
     Active Substance: PEMETREXED DISODIUM
     Indication: LUNG ADENOCARCINOMA
     Dosage: 750 MG, CYCLICAL
     Route: 042
     Dates: start: 20180413, end: 20180427
  2. ALIMTA [Suspect]
     Active Substance: PEMETREXED DISODIUM
     Indication: ADENOCARCINOMA OF COLON
  3. CISPLATINO PFIZER [Suspect]
     Active Substance: CISPLATIN
     Indication: LUNG ADENOCARCINOMA
     Dosage: 440 MG, CYCLICAL
     Route: 042
     Dates: start: 20180411, end: 20180411

REACTIONS (4)
  - Leukopenia [Unknown]
  - Fungal infection [Unknown]
  - Oral pain [Unknown]
  - Anaemia [Unknown]

NARRATIVE: CASE EVENT DATE: 20180413
